FAERS Safety Report 20958898 (Version 3)
Quarter: 2022Q4

REPORT INFORMATION
  Report Type: Spontaneous
  Country: US (occurrence: US)
  Receive Date: 20220614
  Receipt Date: 20221230
  Transmission Date: 20230113
  Serious: No
  Sender: FDA-Public Use
  Company Number: US-BRISTOL-MYERS SQUIBB COMPANY-2022-048079

PATIENT
  Age: 76 Year
  Sex: Female

DRUGS (2)
  1. POMALYST [Suspect]
     Active Substance: POMALIDOMIDE
     Indication: Neoplasm malignant
     Dosage: 1 WEEK OFF
     Route: 048
  2. POMALYST [Suspect]
     Active Substance: POMALIDOMIDE
     Dosage: FREQUENCY: FOR 3 WEEKS ON AND 1 WEEK OFF
     Route: 048

REACTIONS (2)
  - Gout [Unknown]
  - Intentional product use issue [Unknown]
